FAERS Safety Report 18041109 (Version 2)
Quarter: 2023Q1

REPORT INFORMATION
  Report Type: Spontaneous
  Country: PT (occurrence: PT)
  Receive Date: 20200718
  Receipt Date: 20230118
  Transmission Date: 20230417
  Serious: Yes (Death, Other)
  Sender: FDA-Public Use
  Company Number: PT-NOVARTISPH-NVSC2019PT050122

PATIENT
  Age: 40 Year
  Sex: Female

DRUGS (10)
  1. LAPATINIB [Suspect]
     Active Substance: LAPATINIB
     Indication: Metastases to liver
     Dosage: UNK
     Route: 065
     Dates: start: 200804
  2. LAPATINIB [Suspect]
     Active Substance: LAPATINIB
     Indication: Metastases to lung
  3. LAPATINIB [Suspect]
     Active Substance: LAPATINIB
     Indication: Invasive ductal breast carcinoma
  4. LETROZOLE [Suspect]
     Active Substance: LETROZOLE
     Indication: Invasive ductal breast carcinoma
     Dosage: UNK
     Route: 065
  5. CAPECITABINE [Suspect]
     Active Substance: CAPECITABINE
     Indication: Metastases to lung
     Dosage: UNK
     Route: 065
  6. CAPECITABINE [Suspect]
     Active Substance: CAPECITABINE
     Indication: Metastases to liver
  7. CAPECITABINE [Suspect]
     Active Substance: CAPECITABINE
     Indication: Invasive ductal breast carcinoma
  8. TRASTUZUMAB [Suspect]
     Active Substance: TRASTUZUMAB
     Indication: HER2 positive breast cancer
     Dosage: UNK
     Route: 042
     Dates: start: 200901
  9. TRASTUZUMAB [Suspect]
     Active Substance: TRASTUZUMAB
     Indication: Invasive ductal breast carcinoma
     Dosage: 25 MG
     Route: 042
  10. TRASTUZUMAB [Suspect]
     Active Substance: TRASTUZUMAB
     Dosage: MAINTENANCE THERAPY STOPPED
     Route: 042
     Dates: end: 200709

REACTIONS (11)
  - Meningitis listeria [Fatal]
  - Headache [Unknown]
  - Musculoskeletal stiffness [Unknown]
  - Metastases to central nervous system [Unknown]
  - Ejection fraction decreased [Recovered/Resolved]
  - Limb discomfort [Unknown]
  - Metastases to lung [Unknown]
  - Gait disturbance [Unknown]
  - Metastases to liver [Unknown]
  - Metastases to meninges [Unknown]
  - Therapy partial responder [Unknown]
